FAERS Safety Report 12956946 (Version 1)
Quarter: 2016Q4

REPORT INFORMATION
  Report Type: Spontaneous
  Country: US (occurrence: US)
  Receive Date: 20161118
  Receipt Date: 20161118
  Transmission Date: 20170207
  Serious: Yes (Other)
  Sender: FDA-Public Use
  Company Number: US-ELI_LILLY_AND_COMPANY-US201607012859

PATIENT
  Sex: Female
  Weight: 99 kg

DRUGS (2)
  1. CYMBALTA [Suspect]
     Active Substance: DULOXETINE HYDROCHLORIDE
     Indication: MAJOR DEPRESSION
     Dosage: 30 MG, QD
     Route: 065
     Dates: start: 20051010
  2. CYMBALTA [Suspect]
     Active Substance: DULOXETINE HYDROCHLORIDE
     Dosage: 60 MG, QD
     Route: 065
     Dates: end: 20150410

REACTIONS (12)
  - Anxiety [Unknown]
  - Hyperhidrosis [Unknown]
  - Suicidal ideation [Unknown]
  - Drug withdrawal syndrome [Unknown]
  - Agitation [Unknown]
  - Paraesthesia [Unknown]
  - Confusional state [Unknown]
  - Diarrhoea [Unknown]
  - Irritability [Unknown]
  - Fatigue [Unknown]
  - Vertigo [Unknown]
  - Insomnia [Unknown]
